FAERS Safety Report 8170060-3 (Version None)
Quarter: 2012Q1

REPORT INFORMATION
  Report Type: 
  Country: None (occurrence: None)
  Receive Date: 20120106
  Receipt Date: 20101115
  Transmission Date: 20120608
  Serious: Yes (Other)
  Sender: FDA-Public Use
  Company Number: 20100532

PATIENT
  Age: 50 Year
  Sex: Female

DRUGS (1)
  1. VENOFER [Suspect]
     Indication: RENAL FAILURE CHRONIC
     Dosage: 100 MG INTRAVENOUS
     Route: 042
     Dates: start: 20101005, end: 20101113

REACTIONS (1)
  - ANAPHYLACTOID REACTION [None]
